FAERS Safety Report 21090101 (Version 1)
Quarter: 2022Q3

REPORT INFORMATION
  Report Type: Spontaneous
  Country: US (occurrence: US)
  Receive Date: 20220715
  Receipt Date: 20220715
  Transmission Date: 20221027
  Serious: Yes (Hospitalization, Other)
  Sender: FDA-Public Use
  Company Number: US-BRISTOL-MYERS SQUIBB COMPANY-2022-072401

PATIENT
  Age: 78 Year
  Sex: Male

DRUGS (4)
  1. VIDAZA [Suspect]
     Active Substance: AZACITIDINE
     Indication: Acute myeloid leukaemia
     Route: 065
     Dates: start: 20220502, end: 20220510
  2. VENCLEXTA [Suspect]
     Active Substance: VENETOCLAX
     Indication: Acute myeloid leukaemia
     Dosage: 4 IN 1 D
     Route: 048
     Dates: start: 20220517, end: 202206
  3. VENCLEXTA [Suspect]
     Active Substance: VENETOCLAX
     Dosage: 2 IN 1 D (DOSE DECREASED)
     Route: 048
     Dates: start: 20220601, end: 20220622
  4. VENCLEXTA [Suspect]
     Active Substance: VENETOCLAX
     Dosage: 1 IN 1 D
     Route: 048
     Dates: start: 20220622

REACTIONS (3)
  - Tonsillitis [Recovering/Resolving]
  - Abscess [Recovering/Resolving]
  - Neutropenia [Not Recovered/Not Resolved]

NARRATIVE: CASE EVENT DATE: 20220501
